FAERS Safety Report 5088270-0 (Version None)
Quarter: 2006Q3

REPORT INFORMATION
  Report Type: 
  Country: None (occurrence: None)
  Receive Date: 20060823
  Receipt Date: 20060823
  Transmission Date: 20061208
  Serious: Yes (Other)
  Sender: FDA-Public Use
  Company Number: None

PATIENT
  Age: 54 Year
  Sex: Male
  Weight: 57.7 kg

DRUGS (2)
  1. TRUVADA (EMTRICITIBINE/TENOFAVIR) 200/300 [Suspect]
     Indication: URTICARIA
     Dosage: 1 TAB DAILY PO
     Route: 048
     Dates: start: 20050401
  2. ATAZANAVIR 150 MG [Suspect]
     Indication: URTICARIA
     Dosage: 300 MG DAILY PO
     Route: 048
     Dates: start: 20050401

REACTIONS (1)
  - BLOOD CREATININE INCREASED [None]
